FAERS Safety Report 7494393-9 (Version None)
Quarter: 2011Q2

REPORT INFORMATION
  Report Type: 
  Country: None (occurrence: None)
  Receive Date: 20110520
  Receipt Date: 20110518
  Transmission Date: 20111010
  Serious: Yes (Other)
  Sender: FDA-Public Use
  Company Number: US-PFIZER INC-2011107647

PATIENT
  Sex: Female
  Weight: 118 kg

DRUGS (5)
  1. LYRICA [Suspect]
     Indication: NERVE INJURY
     Dosage: 150 MG, 2X/DAY
     Route: 048
     Dates: start: 20110201, end: 20110401
  2. SIMVASTATIN [Concomitant]
     Dosage: UNK
  3. BUSPAR [Concomitant]
     Dosage: UNK
  4. LISINOPRIL [Concomitant]
     Dosage: UNK
  5. NEXIUM [Concomitant]
     Dosage: UNK

REACTIONS (2)
  - FALL [None]
  - LOSS OF CONSCIOUSNESS [None]
